FAERS Safety Report 5151480-8 (Version None)
Quarter: 2006Q4

REPORT INFORMATION
  Report Type: 
  Country: None (occurrence: None)
  Receive Date: 20061115
  Receipt Date: 20061108
  Transmission Date: 20070319
  Serious: Yes (Other)
  Sender: FDA-Public Use
  Company Number: US-SANOFI-SYNTHELABO-A03200606748

PATIENT
  Sex: Male

DRUGS (1)
  1. ELOXATIN [Suspect]
     Indication: DRUG USE FOR UNKNOWN INDICATION
     Route: 042
     Dates: start: 20060101, end: 20060101

REACTIONS (1)
  - PELVIC VENOUS THROMBOSIS [None]
